FAERS Safety Report 7468529-X (Version None)
Quarter: 2011Q2

REPORT INFORMATION
  Report Type: 
  Country: None (occurrence: None)
  Receive Date: 20110509
  Receipt Date: 20110427
  Transmission Date: 20111010
  Serious: Yes (Hospitalization)
  Sender: FDA-Public Use
  Company Number: FR-KINGPHARMUSA00001-K201100506

PATIENT
  Age: 79 Year
  Sex: Male

DRUGS (2)
  1. ALTACE [Suspect]
     Indication: CARDIAC FAILURE
     Route: 048
  2. OPTIRAY 300 [Suspect]
     Indication: COMPUTERISED TOMOGRAM
     Dosage: UNK
     Dates: start: 20100804

REACTIONS (11)
  - CARDIAC FAILURE [None]
  - PNEUMONIA [None]
  - ANURIA [None]
  - DEHYDRATION [None]
  - LUNG INFILTRATION [None]
  - ENTEROSTOMY [None]
  - URINARY RETENTION [None]
  - INTERNATIONAL NORMALISED RATIO INCREASED [None]
  - BLOOD CREATININE INCREASED [None]
  - EMOTIONAL DISTRESS [None]
  - RENAL FAILURE [None]
